FAERS Safety Report 6234218-2 (Version None)
Quarter: 2009Q2

REPORT INFORMATION
  Report Type: 
  Country: None (occurrence: None)
  Receive Date: 20090618
  Receipt Date: 20090616
  Transmission Date: 20091009
  Serious: Yes (Death)
  Sender: FDA-Public Use
  Company Number: JP-JNJFOC-20090600174

PATIENT
  Sex: Male
  Weight: 54 kg

DRUGS (12)
  1. ITRIZOLE [Suspect]
     Indication: BRONCHOPULMONARY ASPERGILLOSIS
     Route: 042
  2. MAGNESIUM OXIDE [Concomitant]
     Indication: CONSTIPATION
     Route: 048
  3. MEROPENEM TRIHYDRATE [Concomitant]
     Indication: PNEUMONIA
     Route: 042
  4. HOKUNALIN [Concomitant]
     Indication: ASTHMA
     Route: 062
  5. CLEITON [Concomitant]
     Indication: ASTHMA
     Route: 042
  6. AMINOPHYLLINE [Concomitant]
     Indication: ASTHMA
     Route: 048
  7. TAKEPRON [Concomitant]
     Indication: PROPHYLAXIS
     Route: 048
  8. HARNAL [Concomitant]
     Indication: BENIGN PROSTATIC HYPERPLASIA
     Route: 048
  9. VESICARE [Concomitant]
     Indication: BENIGN PROSTATIC HYPERPLASIA
     Route: 048
  10. PREDNISOLONE [Concomitant]
     Indication: BENIGN PROSTATIC HYPERPLASIA
     Route: 048
  11. METEBANYL [Concomitant]
     Route: 048
  12. LASIX [Concomitant]
     Indication: CARDIAC FAILURE
     Route: 042

REACTIONS (2)
  - CARDIAC FAILURE [None]
  - INTERSTITIAL LUNG DISEASE [None]
